FAERS Safety Report 9754326 (Version 1)
Quarter: 2013Q4

REPORT INFORMATION
  Report Type: Spontaneous
  Country: JP (occurrence: JP)
  Receive Date: 20131213
  Receipt Date: 20131213
  Transmission Date: 20140711
  Serious: Yes (Other)
  Sender: FDA-Public Use
  Company Number: PHHY2013JP144353

PATIENT
  Age: 38 Year
  Sex: Female

DRUGS (5)
  1. CLARITHROMYCIN [Suspect]
     Indication: PARASPINAL ABSCESS
     Dosage: 800 MG, PER DAY
  2. ETHAMBUTOL [Suspect]
     Indication: PARASPINAL ABSCESS
     Dosage: 750 MG, PER DAY
  3. RIFAMPICIN [Suspect]
     Indication: PARASPINAL ABSCESS
     Dosage: 450 MG, PER DAY
  4. PREDNISOLONE [Concomitant]
     Indication: SYSTEMIC LUPUS ERYTHEMATOSUS
     Dosage: 60 MG, PER DAY
  5. PREDNISOLONE [Concomitant]
     Dosage: 15 MG, PER DAY

REACTIONS (1)
  - Back pain [Recovering/Resolving]
